FAERS Safety Report 5476719-0 (Version None)
Quarter: 2007Q4

REPORT INFORMATION
  Report Type: 
  Country: None (occurrence: None)
  Receive Date: 20071003
  Receipt Date: 20071003
  Transmission Date: 20080405
  Serious: Yes (Hospitalization)
  Sender: FDA-Public Use
  Company Number: None

PATIENT
  Sex: Female
  Weight: 80.7403 kg

DRUGS (10)
  1. ERBITUX [Suspect]
     Dosage: 400 MG/M2^2 ONCE I.V., 250 MG/M^2, WEEKLY I.V.
     Route: 042
     Dates: start: 20070815, end: 20070912
  2. ERBITUX [Suspect]
     Dosage: 400 MG/M2^2 ONCE I.V., 250 MG/M^2, WEEKLY I.V.
     Route: 042
     Dates: start: 20070808
  3. CARDIZEM [Concomitant]
  4. SYNTHROID [Concomitant]
  5. MINOCYCLINE HCL [Concomitant]
  6. HYDROCHLOROTHIAZIDE [Concomitant]
  7. MAALOX [Concomitant]
  8. INDOCIN [Concomitant]
  9. OXYCONTIN [Concomitant]
  10. OXYCODONE HCL [Concomitant]

REACTIONS (4)
  - BACK PAIN [None]
  - HYPERTENSION [None]
  - PERICARDIAL EFFUSION [None]
  - PERICARDITIS [None]
